FAERS Safety Report 5087747-1 (Version None)
Quarter: 2006Q3

REPORT INFORMATION
  Report Type: 
  Country: None (occurrence: None)
  Receive Date: 20060822
  Receipt Date: 20060822
  Transmission Date: 20061208
  Serious: Yes (Life-Threatening, Hospitalization)
  Sender: FDA-Public Use
  Company Number: None

PATIENT
  Sex: Female

DRUGS (2)
  1. REMICADE [Suspect]
     Indication: RHEUMATOID ARTHRITIS
     Dosage: 700MG  Q 4 WEEKS  IV
     Route: 042
     Dates: start: 20010524, end: 20020612
  2. REMICADE [Suspect]
     Indication: RHEUMATOID ARTHRITIS
     Dosage: 700MG  Q 4 WEEKS  IV
     Route: 042
     Dates: start: 20030701, end: 20060427

REACTIONS (1)
  - OESOPHAGEAL CARCINOMA [None]
